FAERS Safety Report 13229448 (Version 2)
Quarter: 2017Q1

REPORT INFORMATION
  Report Type: Report from Study
  Country: US (occurrence: US)
  Receive Date: 20170214
  Receipt Date: 20170331
  Transmission Date: 20170428
  Serious: No
  Sender: FDA-Public Use
  Company Number: PHEH2017US003140

PATIENT
  Age: 44 Year
  Sex: Male

DRUGS (1)
  1. COSENTYX [Suspect]
     Active Substance: SECUKINUMAB
     Indication: ANKYLOSING SPONDYLITIS
     Dosage: 150 MG, QMO
     Route: 058
     Dates: start: 20161207

REACTIONS (3)
  - Pain [Unknown]
  - Psoriasis [Not Recovered/Not Resolved]
  - Arthritis [Not Recovered/Not Resolved]

NARRATIVE: CASE EVENT DATE: 20170125
